FAERS Safety Report 9869419 (Version 3)
Quarter: 2014Q2

REPORT INFORMATION
  Report Type: Report from Study
  Country: AU (occurrence: AU)
  Receive Date: 20140205
  Receipt Date: 20140402
  Transmission Date: 20141212
  Serious: Yes (Hospitalization, Disabling, Other)
  Sender: FDA-Public Use
  Company Number: PHHY2013AU121504

PATIENT
  Age: 49 Year
  Sex: Male

DRUGS (8)
  1. CLOZARIL [Suspect]
     Dosage: 200 MG, UNK
     Route: 048
     Dates: start: 20011130
  2. CLOZARIL [Suspect]
     Dosage: VARIOUS DOSES UPTO 500 MG DAILY
     Route: 048
     Dates: end: 20131023
  3. CLOZAPINE [Concomitant]
  4. PANTOPRAZOLE [Concomitant]
     Dosage: 40 MG, MANE
  5. ENOXAPARIN [Concomitant]
     Dosage: 80 MG, UNK
     Route: 058
  6. THIAMINE [Concomitant]
     Dosage: 100 MG, UNK
  7. FORTISIP [Concomitant]
     Dosage: 200 ML, UNK
  8. CHOLECALCIFEROL [Concomitant]
     Dosage: 5000 IU, UNK

REACTIONS (21)
  - Renal vein thrombosis [Recovering/Resolving]
  - Lung infection [Recovered/Resolved with Sequelae]
  - Deep vein thrombosis [Recovering/Resolving]
  - Thrombosis [Recovering/Resolving]
  - Local swelling [Unknown]
  - Pain [Unknown]
  - Muscle spasms [Unknown]
  - Tenderness [Unknown]
  - Oedema peripheral [Unknown]
  - Emphysema [Not Recovered/Not Resolved]
  - Weight decreased [Not Recovered/Not Resolved]
  - Haematocrit decreased [Unknown]
  - Red blood cell count decreased [Unknown]
  - Hepatic function abnormal [Unknown]
  - Protein total decreased [Unknown]
  - Blood albumin decreased [Unknown]
  - Globulins decreased [Unknown]
  - Blood calcium decreased [Unknown]
  - Haemoglobin decreased [Unknown]
  - Antipsychotic drug level above therapeutic [Unknown]
  - Platelet count decreased [Unknown]
